FAERS Safety Report 6127401-8 (Version None)
Quarter: 2009Q1

REPORT INFORMATION
  Report Type: 
  Country: None (occurrence: None)
  Receive Date: 20090323
  Receipt Date: 20090312
  Transmission Date: 20090719
  Serious: Yes (Hospitalization)
  Sender: FDA-Public Use
  Company Number: PHHY2009CA00487

PATIENT
  Sex: Female

DRUGS (2)
  1. CLOZARIL [Suspect]
     Indication: SCHIZOPHRENIA
     Dosage: UNK
     Dates: start: 19970916, end: 20081226
  2. CLOZARIL [Suspect]
     Dosage: UNK
     Dates: start: 20090102, end: 20090301

REACTIONS (2)
  - COLONIC PSEUDO-OBSTRUCTION [None]
  - ILEUS PARALYTIC [None]
